FAERS Safety Report 6009968-3 (Version None)
Quarter: 2008Q4

REPORT INFORMATION
  Report Type: 
  Country: None (occurrence: None)
  Receive Date: 20081218
  Receipt Date: 20081215
  Transmission Date: 20090506
  Serious: Yes (Other)
  Sender: FDA-Public Use
  Company Number: AU-JNJFOC-20081204193

PATIENT

DRUGS (3)
  1. RISPERIDONE [Suspect]
     Indication: DRUG EXPOSURE DURING PREGNANCY
     Route: 065
  2. EFFEXOR [Suspect]
     Indication: DRUG EXPOSURE DURING PREGNANCY
     Route: 065
  3. SYNTOCINON [Suspect]
     Indication: DRUG EXPOSURE DURING PREGNANCY
     Route: 065

REACTIONS (1)
  - CEREBRAL PALSY [None]
